FAERS Safety Report 22623597 (Version 1)
Quarter: 2023Q2

REPORT INFORMATION
  Report Type: Spontaneous
  Country: US (occurrence: US)
  Receive Date: 20230621
  Receipt Date: 20230621
  Transmission Date: 20230721
  Serious: No
  Sender: FDA-Public Use
  Company Number: US-GSK-US2023AMR083385

PATIENT
  Age: 64 Year
  Sex: Female

DRUGS (4)
  1. BENLYSTA [Suspect]
     Active Substance: BELIMUMAB
     Indication: Systemic lupus erythematosus
     Dosage: 10 MG/KG
     Route: 042
     Dates: start: 20230508
  2. PREDNISONE [Concomitant]
     Active Substance: PREDNISONE
     Indication: Product used for unknown indication
     Dosage: UNK UNK, QD (4MG ALTERNATING WITH 6MG)
  3. NEXIUM [Concomitant]
     Active Substance: ESOMEPRAZOLE MAGNESIUM
     Indication: Product used for unknown indication
     Dosage: UNK
  4. LOSARTAN [Concomitant]
     Active Substance: LOSARTAN
     Indication: Product used for unknown indication
     Dosage: UNK

REACTIONS (11)
  - Nausea [Unknown]
  - Diarrhoea [Unknown]
  - Fatigue [Unknown]
  - Headache [Unknown]
  - Pyrexia [Unknown]
  - Rash maculo-papular [Unknown]
  - C-reactive protein increased [Unknown]
  - Hepatic enzyme increased [Unknown]
  - Proteinuria [Unknown]
  - Disease recurrence [Unknown]
  - Drug eruption [Unknown]

NARRATIVE: CASE EVENT DATE: 20230511
